FAERS Safety Report 5159450-0 (Version None)
Quarter: 2006Q4

REPORT INFORMATION
  Report Type: 
  Country: None (occurrence: None)
  Receive Date: 20061122
  Receipt Date: 20061122
  Transmission Date: 20070319
  Serious: Yes (Other)
  Sender: FDA-Public Use
  Company Number: None

PATIENT
  Age: 31 Year
  Sex: Male
  Weight: 85.2762 kg

DRUGS (1)
  1. LEVAQUIN [Suspect]
     Indication: PARONYCHIA
     Dosage: 750 MG ORALLY Q DAY
     Route: 048
     Dates: start: 20061114, end: 20061120

REACTIONS (1)
  - PAIN IN EXTREMITY [None]
